FAERS Safety Report 24966226 (Version 2)
Quarter: 2025Q1

REPORT INFORMATION
  Report Type: Spontaneous
  Country: HU (occurrence: HU)
  Receive Date: 20250213
  Receipt Date: 20250217
  Transmission Date: 20250408
  Serious: Yes (Hospitalization, Other)
  Sender: ABBVIE
  Company Number: HU-ROCHE-10000190290

PATIENT
  Age: 80 Year
  Sex: Male

DRUGS (5)
  1. CARBIDOPA [Suspect]
     Active Substance: CARBIDOPA
     Indication: Atypical parkinsonism
     Route: 065
  2. CARBIDOPA [Suspect]
     Active Substance: CARBIDOPA
  3. BENSERAZIDE HYDROCHLORIDE\LEVODOPA [Suspect]
     Active Substance: BENSERAZIDE HYDROCHLORIDE\LEVODOPA
     Indication: Atypical parkinsonism
     Route: 065
  4. SINEMET [Suspect]
     Active Substance: CARBIDOPA\LEVODOPA
     Indication: Atypical parkinsonism
     Route: 065
  5. CARBIDOPA\MELEVODOPA [Suspect]
     Active Substance: CARBIDOPA\MELEVODOPA
     Indication: Atypical parkinsonism
     Route: 065

REACTIONS (8)
  - Choking [Unknown]
  - Hallucinations, mixed [Unknown]
  - Muscle spasms [Unknown]
  - Dysphagia [Unknown]
  - Loss of consciousness [Unknown]
  - Overdose [Unknown]
  - Confusional state [Unknown]
  - Somnolence [Unknown]
